FAERS Safety Report 16100142 (Version 1)
Quarter: 2019Q1

REPORT INFORMATION
  Report Type: Spontaneous
  Country: US (occurrence: US)
  Receive Date: 20190321
  Receipt Date: 20190321
  Transmission Date: 20190418
  Serious: No
  Sender: FDA-Public Use
  Company Number: US-ASTRAZENECA-2019SE31967

PATIENT
  Age: 20745 Day
  Sex: Female
  Weight: 186.9 kg

DRUGS (1)
  1. BYDUREON [Suspect]
     Active Substance: EXENATIDE
     Indication: TYPE 2 DIABETES MELLITUS
     Route: 058
     Dates: start: 20190219

REACTIONS (7)
  - Injection site extravasation [Unknown]
  - Product dose omission [Unknown]
  - Injection site pain [Recovered/Resolved]
  - Somnolence [Recovered/Resolved]
  - Diabetes mellitus inadequate control [Unknown]
  - Injection site haemorrhage [Recovered/Resolved]
  - Injection site pain [Unknown]

NARRATIVE: CASE EVENT DATE: 20190219
